FAERS Safety Report 15316128 (Version 1)
Quarter: 2018Q3

REPORT INFORMATION
  Report Type: Spontaneous
  Country: SG (occurrence: SG)
  Receive Date: 20180824
  Receipt Date: 20180824
  Transmission Date: 20181010
  Serious: Yes (Other)
  Sender: FDA-Public Use
  Company Number: SG-FRESENIUS KABI-FK201808982

PATIENT
  Age: 71 Year
  Sex: Male

DRUGS (3)
  1. FLUOROURACIL. [Suspect]
     Active Substance: FLUOROURACIL
     Indication: ADENOCARCINOMA OF APPENDIX
     Dosage: VIA CENTRAL VENOUS CATHETER INSERTED INTO THE LEFT SUBCLAVIAN VEIN
  2. FOLINIC ACID [Suspect]
     Active Substance: LEUCOVORIN
     Indication: ADENOCARCINOMA OF APPENDIX
     Dosage: VIA CENTRAL VENOUS CATHETER INSERTED INTO THE LEFT SUBCLAVIAN VEIN
  3. OXALIPLATIN (MANUFACTURER UNKNOWN) [Suspect]
     Active Substance: OXALIPLATIN
     Indication: ADENOCARCINOMA OF APPENDIX
     Dosage: VIA CENTRAL VENOUS CATHETER INSERTED INTO THE LEFT SUBCLAVIAN VEIN
     Route: 065

REACTIONS (2)
  - Jugular vein thrombosis [Recovering/Resolving]
  - Cranial nerve palsies multiple [Recovering/Resolving]
